FAERS Safety Report 7761024-X (Version None)
Quarter: 2011Q3

REPORT INFORMATION
  Report Type: 
  Country: None (occurrence: None)
  Receive Date: 20110920
  Receipt Date: 20110910
  Transmission Date: 20111222
  Serious: Yes (Other)
  Sender: FDA-Public Use
  Company Number: GB-PAR PHARMACEUTICAL, INC-2011SCPR003236

PATIENT

DRUGS (1)
  1. DOXYCYCLINE [Suspect]
     Indication: PANNICULITIS
     Dosage: 100 MG, BID
     Route: 065

REACTIONS (1)
  - HEPATIC FUNCTION ABNORMAL [None]
